FAERS Safety Report 20417045 (Version 5)
Quarter: 2023Q2

REPORT INFORMATION
  Report Type: Spontaneous
  Country: US (occurrence: US)
  Receive Date: 20220202
  Receipt Date: 20230529
  Transmission Date: 20230721
  Serious: Yes (Other)
  Sender: FDA-Public Use
  Company Number: US-PFIZER INC-202101541009

PATIENT
  Age: 56 Year
  Sex: Female

DRUGS (1)
  1. XELJANZ XR [Suspect]
     Active Substance: TOFACITINIB CITRATE
     Dosage: TAKE 1 TABLET BY MOUTH ONCE DAILY
     Route: 048

REACTIONS (4)
  - Diabetes mellitus [Unknown]
  - Tooth disorder [Unknown]
  - Pain [Unknown]
  - Product dose omission issue [Unknown]
